FAERS Safety Report 17059494 (Version 1)
Quarter: 2019Q4

REPORT INFORMATION
  Report Type: Spontaneous
  Country: US (occurrence: US)
  Receive Date: 20191023
  Receipt Date: 20191023
  Transmission Date: 20200122
  Serious: Yes (Hospitalization)
  Sender: FDA-Public Use
  Company Number: None

PATIENT
  Age: 51 Year
  Sex: Female

DRUGS (8)
  1. ONDANSETRON [Concomitant]
     Active Substance: ONDANSETRON
  2. PREDNISONE. [Concomitant]
     Active Substance: PREDNISONE
  3. DIAZEPAM. [Concomitant]
     Active Substance: DIAZEPAM
  4. TRAMADOL. [Concomitant]
     Active Substance: TRAMADOL
  5. HYDROC/APAP [Concomitant]
  6. BUSPITONE [Concomitant]
  7. COSENTYX [Suspect]
     Active Substance: SECUKINUMAB
     Indication: PSORIASIS
     Route: 058
     Dates: start: 20190523
  8. LEVOTHYROXIN [Concomitant]
     Active Substance: LEVOTHYROXINE

REACTIONS (2)
  - Condition aggravated [None]
  - Kidney infection [None]

NARRATIVE: CASE EVENT DATE: 2019
